FAERS Safety Report 8761501 (Version 3)
Quarter: 2012Q4

REPORT INFORMATION
  Report Type: 
  Country: BR (occurrence: BR)
  Receive Date: 20120829
  Receipt Date: 20120927
  Transmission Date: 20130627
  Serious: Yes (Other)
  Sender: FDA-Public Use
  Company Number: BR-AMGEN-BRASP2012054145

PATIENT
  Age: 47 Year
  Sex: Female
  Weight: 83 kg

DRUGS (2)
  1. ENBREL [Suspect]
     Indication: RHEUMATOID ARTHRITIS
     Dosage: 50 mg, 1x/week
     Route: 058
     Dates: start: 200902, end: 201207
  2. ENBREL [Suspect]
     Dosage: UNK
     Dates: start: 20120808

REACTIONS (3)
  - Pain [Recovering/Resolving]
  - Hypothyroidism [Unknown]
  - Diabetes mellitus [Unknown]
